FAERS Safety Report 22980358 (Version 2)
Quarter: 2024Q2

REPORT INFORMATION
  Report Type: Report from Study
  Country: DE (occurrence: DE)
  Receive Date: 20230925
  Receipt Date: 20240618
  Transmission Date: 20240716
  Serious: Yes (Hospitalization, Other)
  Sender: FDA-Public Use
  Company Number: DE-MYLANLABS-2022M1139919

PATIENT

DRUGS (4)
  1. HULIO [Suspect]
     Active Substance: ADALIMUMAB-FKJP
     Indication: Product used for unknown indication
     Dosage: UNK
     Route: 065
     Dates: start: 202206
  2. HULIO [Suspect]
     Active Substance: ADALIMUMAB-FKJP
     Dosage: 40 MILLIGRAM
     Route: 065
     Dates: start: 20221130
  3. HULIO [Suspect]
     Active Substance: ADALIMUMAB-FKJP
     Dosage: INDUCTION WITH 160 MG AND 80 MILLIGRAM
     Route: 065
     Dates: start: 202206
  4. HULIO [Suspect]
     Active Substance: ADALIMUMAB-FKJP
     Dosage: 40 MILLIGRAM, Q2W
     Route: 065
     Dates: start: 202207

REACTIONS (6)
  - Abscess [Unknown]
  - Abdominal pain [Recovered/Resolved]
  - Gastroenteritis [Unknown]
  - Colitis [Recovered/Resolved]
  - Arthralgia [Unknown]
  - Infection [Unknown]

NARRATIVE: CASE EVENT DATE: 20221211
